FAERS Safety Report 17782091 (Version 1)
Quarter: 2020Q2

REPORT INFORMATION
  Report Type: Spontaneous
  Country: GB (occurrence: GB)
  Receive Date: 20200514
  Receipt Date: 20200514
  Transmission Date: 20200714
  Serious: No
  Sender: FDA-Public Use
  Company Number: GB-ALKEM LABORATORIES LIMITED-GB-ALKEM-2020-00515

PATIENT
  Age: 45 Year
  Sex: Female
  Weight: 53 kg

DRUGS (1)
  1. PREGABALIN. [Suspect]
     Active Substance: PREGABALIN
     Indication: BACK PAIN
     Dosage: 1 DOSE BID
     Route: 048
     Dates: start: 20200115

REACTIONS (3)
  - Eczema [Not Recovered/Not Resolved]
  - Dry skin [Not Recovered/Not Resolved]
  - Facial pain [Not Recovered/Not Resolved]

NARRATIVE: CASE EVENT DATE: 20200125
